FAERS Safety Report 9065768 (Version 3)
Quarter: 2014Q4

REPORT INFORMATION
  Report Type: Spontaneous
  Country: US (occurrence: US)
  Receive Date: 20130214
  Receipt Date: 20141215
  Transmission Date: 20150529
  Serious: Yes (Hospitalization, Disabling, Other)
  Sender: FDA-Public Use
  Company Number: US-BAYER-2013-017477

PATIENT
  Age: 32 Year
  Sex: Female
  Weight: 79.37 kg

DRUGS (7)
  1. YAZ [Suspect]
     Active Substance: DROSPIRENONE\ETHINYL ESTRADIOL
     Indication: CONTRACEPTION
     Dosage: UNK
     Dates: start: 2007
  2. VITAMIN E [Concomitant]
     Active Substance: .ALPHA.-TOCOPHEROL
     Indication: LIVER DISORDER
     Dosage: 400 MG, 2 DAILY
     Dates: start: 2010
  3. GIANVI [Suspect]
     Active Substance: DROSPIRENONE\ETHINYL ESTRADIOL
     Indication: CONTRACEPTION
     Dosage: UNK
     Dates: start: 2009
  4. TRILEPTAL [Concomitant]
     Active Substance: OXCARBAZEPINE
     Indication: BIPOLAR DISORDER
     Dosage: UNK UNK, QD
     Dates: start: 201009, end: 201309
  5. BUSPAR [Concomitant]
     Active Substance: BUSPIRONE HYDROCHLORIDE
     Indication: ANXIETY
     Dosage: DAILY
     Dates: start: 201209, end: 201309
  6. ATENOLOL. [Concomitant]
     Active Substance: ATENOLOL
     Indication: HEART RATE INCREASED
     Dosage: 50 MG, DAILY
     Dates: start: 2000, end: 201211
  7. PROAIR HFA [Concomitant]
     Active Substance: ALBUTEROL SULFATE
     Dosage: UNK UNK, PRN
     Dates: start: 1993

REACTIONS (13)
  - Amputation stump pain [None]
  - Paraesthesia [None]
  - Feeling of despair [None]
  - Cholelithiasis [None]
  - Radial pulse decreased [None]
  - Arm amputation [None]
  - Fear of disease [None]
  - Limb injury [None]
  - Skin discolouration [None]
  - Poor peripheral circulation [None]
  - Deep vein thrombosis [None]
  - Injury [None]
  - Pain [None]

NARRATIVE: CASE EVENT DATE: 2010
